FAERS Safety Report 12547524 (Version 3)
Quarter: 2016Q3

REPORT INFORMATION
  Report Type: Spontaneous
  Country: US (occurrence: US)
  Receive Date: 20160712
  Receipt Date: 20160808
  Transmission Date: 20161109
  Serious: No
  Sender: FDA-Public Use
  Company Number: US-BEH-2016062282

PATIENT
  Sex: Female
  Weight: 146 kg

DRUGS (25)
  1. HIZENTRA [Suspect]
     Active Substance: HUMAN IMMUNOGLOBULIN G
     Route: 058
  2. HIZENTRA [Suspect]
     Active Substance: HUMAN IMMUNOGLOBULIN G
     Indication: IMMUNODEFICIENCY COMMON VARIABLE
     Route: 058
  3. TROSPIUM [Concomitant]
     Active Substance: TROSPIUM
  4. HIZENTRA [Suspect]
     Active Substance: HUMAN IMMUNOGLOBULIN G
     Route: 058
  5. AMITRIPTYLINE [Concomitant]
     Active Substance: AMITRIPTYLINE
  6. LAMICTAL [Concomitant]
     Active Substance: LAMOTRIGINE
  7. DIPHENHYDRAMINE. [Concomitant]
     Active Substance: DIPHENHYDRAMINE
  8. SUMATRIPTAN. [Concomitant]
     Active Substance: SUMATRIPTAN
  9. TRANEXAMIC ACID. [Concomitant]
     Active Substance: TRANEXAMIC ACID
  10. IMITREX [Concomitant]
     Active Substance: SUMATRIPTAN SUCCINATE
  11. ALBUTEROL. [Concomitant]
     Active Substance: ALBUTEROL
  12. VITAMIN D [Concomitant]
     Active Substance: CHOLECALCIFEROL
  13. BENADRYL [Concomitant]
     Active Substance: DIPHENHYDRAMINE HYDROCHLORIDE
  14. FLUPHENAZINE [Concomitant]
     Active Substance: FLUPHENAZINE
  15. HIZENTRA [Suspect]
     Active Substance: HUMAN IMMUNOGLOBULIN G
     Route: 058
     Dates: start: 20150608
  16. IBUPROFEN. [Concomitant]
     Active Substance: IBUPROFEN
  17. DIFULCAN [Concomitant]
  18. HYDROXYZINE [Concomitant]
     Active Substance: HYDROXYZINE\HYDROXYZINE HYDROCHLORIDE
  19. TRAZODONE [Concomitant]
     Active Substance: TRAZODONE HYDROCHLORIDE
  20. ACETAMINOPHEN. [Concomitant]
     Active Substance: ACETAMINOPHEN
  21. EPIPEN [Concomitant]
     Active Substance: EPINEPHRINE
  22. NASONEX [Concomitant]
     Active Substance: MOMETASONE FUROATE
  23. METORPROLOL [Concomitant]
  24. VITAMIN B [Concomitant]
     Active Substance: VITAMIN B
  25. LEVOTHYROXINE. [Concomitant]
     Active Substance: LEVOTHYROXINE

REACTIONS (1)
  - Infection [Unknown]
